FAERS Safety Report 9892312 (Version 1)
Quarter: 2014Q1

REPORT INFORMATION
  Report Type: Spontaneous
  Country: IN (occurrence: IN)
  Receive Date: 20140212
  Receipt Date: 20140212
  Transmission Date: 20141002
  Serious: Yes (Hospitalization, Other)
  Sender: FDA-Public Use
  Company Number: PHHY2014IN016153

PATIENT
  Sex: Male

DRUGS (8)
  1. OXYTOCIN [Suspect]
     Route: 064
  2. PREDNISOLONE [Suspect]
     Dosage: MATERNAL DOSE: 50MG QD
     Route: 064
  3. PREDNISOLONE [Suspect]
     Dosage: MATERNAL DOSE: 60MG QD
     Route: 064
  4. PREDNISOLONE [Suspect]
     Dosage: MATERNAL DOSE: 10MG QD
     Route: 064
  5. PREDNISOLONE [Suspect]
     Dosage: MATERNAL DOSE: 50MG QD
     Route: 064
  6. IMMUNOGLOBULINS [Suspect]
     Dosage: MATERNAL DOSE: 1 G/KG, EVERY ALTERNATE DAY
     Route: 064
  7. METHYLPREDNISOLONE [Suspect]
     Dosage: MATERNAL DOSE: 100 MG, TID
     Route: 064
  8. INSULIN [Suspect]
     Route: 064

REACTIONS (5)
  - Thrombocytopenia [Unknown]
  - Premature baby [Unknown]
  - Low birth weight baby [Unknown]
  - Foetal exposure during pregnancy [Unknown]
  - Foetal exposure during delivery [Unknown]
